FAERS Safety Report 8780250 (Version 1)
Quarter: 2012Q4

REPORT INFORMATION
  Report Type: Spontaneous
  Country: US (occurrence: None)
  Receive Date: 20120905
  Receipt Date: 20120905
  Transmission Date: 20130627
  Serious: Yes (Life-Threatening, Hospitalization)
  Sender: FDA-Public Use
  Company Number: None

PATIENT
  Age: 47 Year
  Sex: Female
  Weight: 103.42 kg

DRUGS (1)
  1. GABAPENTIN [Suspect]
     Indication: KNEE PAIN
     Dosage: take on three time every night
     Dates: start: 20120626, end: 20120728

REACTIONS (3)
  - Pruritus generalised [None]
  - Mass [None]
  - Pyrexia [None]
